FAERS Safety Report 7914454-7 (Version None)
Quarter: 2011Q4

REPORT INFORMATION
  Report Type: 
  Country: None (occurrence: None)
  Receive Date: 20111115
  Receipt Date: 20111107
  Transmission Date: 20120403
  Serious: Yes (Other)
  Sender: FDA-Public Use
  Company Number: US-AMGEN-USASP2011058275

PATIENT
  Age: 61 Year
  Sex: Female

DRUGS (2)
  1. METOPROLOL [Concomitant]
     Dosage: UNK
  2. ENBREL [Suspect]
     Indication: RHEUMATOID ARTHRITIS
     Dosage: 50 MG, QWK

REACTIONS (5)
  - RASH MACULAR [None]
  - SKIN DISCOLOURATION [None]
  - THYROID DISORDER [None]
  - PRURITUS [None]
  - MACULE [None]
